FAERS Safety Report 9904882 (Version 1)
Quarter: 2013Q2

REPORT INFORMATION
  Report Type: Spontaneous
  Country: US (occurrence: None)
  Receive Date: 20130305
  Receipt Date: 20130305
  Transmission Date: 20140414
  Serious: Yes (Hospitalization)
  Sender: FDA-Public Use
  Company Number: 163-21880-12030600

PATIENT
  Age: 86 Year
  Sex: Female

DRUGS (8)
  1. REVLIMID [Suspect]
     Indication: MYELODYSPLASTIC SYNDROME
     Dosage: 10 MG, X 28, PO
     Route: 048
     Dates: start: 20120106
  2. FOLIC ACID [Concomitant]
  3. VITAMIN B12 (CYANOCOBALAMIN) (UNKNOWN) [Concomitant]
  4. PRESERVISION AREDS 2 (PRESERVISION EYE VITAMIN AND MINERAL SUPPL.) (EYE DROPS) [Concomitant]
  5. NIACIN (NICOTINIC ACID) (UNKNOWN) [Concomitant]
  6. MULTI FOR HER (MULTIVITAMINS) (UNKNOWN) [Concomitant]
  7. BISOPROLOL FUMARATE (BISOPROLOL FUMARATE) (UNKNOWN) [Concomitant]
  8. DOXYCYCLINE HYCLATE (DOXYCYCLINE HYCLATE) (UNKNOWN) [Concomitant]

REACTIONS (2)
  - Local swelling [None]
  - Local swelling [None]
